FAERS Safety Report 17939658 (Version 2)
Quarter: 2020Q3

REPORT INFORMATION
  Report Type: Spontaneous
  Country: US (occurrence: US)
  Receive Date: 20200625
  Receipt Date: 20200818
  Transmission Date: 20201103
  Serious: No
  Sender: FDA-Public Use
  Company Number: US-LUNDBECK-DKLU3017576

PATIENT
  Age: 15 Year
  Sex: Female

DRUGS (2)
  1. NORTHERA [Suspect]
     Active Substance: DROXIDOPA
     Route: 048
     Dates: start: 20200614
  2. NORTHERA [Suspect]
     Active Substance: DROXIDOPA
     Indication: AUTONOMIC NEUROPATHY
     Route: 048
     Dates: start: 20180928

REACTIONS (3)
  - Malaise [Unknown]
  - Sleep disorder [Unknown]
  - Intentional underdose [Unknown]
